FAERS Safety Report 7531418-6 (Version None)
Quarter: 2011Q2

REPORT INFORMATION
  Report Type: 
  Country: None (occurrence: None)
  Receive Date: 20110608
  Receipt Date: 20110603
  Transmission Date: 20111010
  Serious: Yes (Other)
  Sender: FDA-Public Use
  Company Number: US-AMGEN-USASP2011019134

PATIENT
  Age: 87 Year
  Sex: Male
  Weight: 89.569 kg

DRUGS (1)
  1. NPLATE [Suspect]
     Indication: IDIOPATHIC THROMBOCYTOPENIC PURPURA
     Dosage: 200 A?G, QWK
     Route: 058
     Dates: start: 20100923, end: 20101103

REACTIONS (5)
  - POIKILOCYTOSIS [None]
  - ANISOCYTOSIS [None]
  - THROMBOCYTOPENIA [None]
  - BIOPSY BONE MARROW ABNORMAL [None]
  - PLATELET COUNT DECREASED [None]
